FAERS Safety Report 7738707-0 (Version None)
Quarter: 2011Q3

REPORT INFORMATION
  Report Type: 
  Country: None (occurrence: None)
  Receive Date: 20110908
  Receipt Date: 20110902
  Transmission Date: 20111222
  Serious: No
  Sender: FDA-Public Use
  Company Number: PR-PFIZER INC-2005155202

PATIENT
  Sex: Male

DRUGS (1)
  1. ZMAX [Suspect]
     Indication: ILL-DEFINED DISORDER
     Route: 065

REACTIONS (1)
  - DIARRHOEA [None]
